FAERS Safety Report 12622079 (Version 1)
Quarter: 2016Q3

REPORT INFORMATION
  Report Type: Spontaneous
  Country: US (occurrence: US)
  Receive Date: 20160804
  Receipt Date: 20160804
  Transmission Date: 20161109
  Serious: No
  Sender: FDA-Public Use
  Company Number: US-ANACOR-2016ANA00159

PATIENT
  Sex: Female

DRUGS (2)
  1. KERYDIN [Suspect]
     Active Substance: TAVABOROLE
     Indication: ONYCHOMYCOSIS
     Dosage: UNK, 1X/DAY
     Route: 061
     Dates: start: 201602, end: 2016
  2. KERYDIN [Suspect]
     Active Substance: TAVABOROLE
     Dosage: UNK, EVERY 48 HOURS
     Route: 061
     Dates: start: 2016, end: 20160501

REACTIONS (7)
  - Inappropriate schedule of drug administration [Not Recovered/Not Resolved]
  - Drug ineffective [Not Recovered/Not Resolved]
  - Application site fissure [Recovering/Resolving]
  - Application site exfoliation [Not Recovered/Not Resolved]
  - Application site dryness [Recovered/Resolved]
  - Application site irritation [Not Recovered/Not Resolved]
  - Skin ulcer [Recovering/Resolving]

NARRATIVE: CASE EVENT DATE: 2016
